FAERS Safety Report 6793128-2 (Version None)
Quarter: 2010Q2

REPORT INFORMATION
  Report Type: 
  Country: None (occurrence: None)
  Receive Date: 20100624
  Receipt Date: 20090715
  Transmission Date: 20101027
  Serious: Yes (Other)
  Sender: FDA-Public Use
  Company Number: US-MYLANLABS-2009S1009239

PATIENT
  Age: 61 Year
  Sex: Female

DRUGS (9)
  1. CLOZAPINE [Suspect]
     Indication: SCHIZOPHRENIA
     Dates: end: 20090611
  2. CELLULOSE MICROCRYSTALLINE [Concomitant]
     Dosage: POWDER
  3. DEPAKOTE ER [Concomitant]
  4. CYMBALTA [Concomitant]
  5. IRON SULFATETHIAMIN COMPOUND TAB [Concomitant]
  6. HALDOL [Concomitant]
  7. PROTONIX [Concomitant]
  8. SENOKOT [Concomitant]
  9. DETROL LA [Concomitant]

REACTIONS (1)
  - GRANULOCYTOPENIA [None]
